FAERS Safety Report 8522859-9 (Version None)
Quarter: 2012Q3

REPORT INFORMATION
  Report Type: 
  Country: None (occurrence: None)
  Receive Date: 20120720
  Receipt Date: 20120710
  Transmission Date: 20120928
  Serious: Yes (Hospitalization, Other)
  Sender: FDA-Public Use
  Company Number: US-BIOGENIDEC-2012BI022334

PATIENT
  Age: 49 Year
  Sex: Female

DRUGS (3)
  1. ZONEGRAN [Concomitant]
  2. TYSABRI [Suspect]
     Indication: MULTIPLE SCLEROSIS
     Route: 042
     Dates: start: 20120508
  3. AMPYRA [Concomitant]

REACTIONS (2)
  - CONVULSION [None]
  - CYST REMOVAL [None]
